FAERS Safety Report 4303946-8 (Version None)
Quarter: 2004Q1

REPORT INFORMATION
  Report Type: 
  Country: None (occurrence: None)
  Receive Date: 20040225
  Receipt Date: 20040119
  Transmission Date: 20041129
  Serious: Yes (Other)
  Sender: FDA-Public Use
  Company Number: JP-ROCHE-356675

PATIENT
  Age: 4 Year
  Sex: Male
  Weight: 17.7 kg

DRUGS (8)
  1. TAMIFLU [Suspect]
     Dosage: FORMULATION REPORTED AS: 3% DRY SYRUP. FREQUENCY REPORTED AS X2.
     Route: 048
     Dates: start: 20040113, end: 20040114
  2. BIOFERMIN [Concomitant]
     Dosage: FREQUENCY REPORTED AS X3
     Route: 048
     Dates: start: 20040113, end: 20040116
  3. NAUZELIN [Concomitant]
     Dosage: FREQUENCY REPORTED AS X3
     Route: 048
     Dates: start: 20040113, end: 20040116
  4. SCOPOLIA EXTRACT [Concomitant]
     Dosage: FREQUENCY REPORTED AS X3.
     Route: 048
     Dates: start: 20040113, end: 20040116
  5. PERIACTIN [Concomitant]
     Dosage: FREQUENCY REPORTED AS X 3.
     Route: 048
     Dates: start: 20040113, end: 20040117
  6. ASVERIN [Concomitant]
     Dosage: FREQUENCY REPORTED AS X 3.
     Route: 048
     Dates: start: 20040113, end: 20040117
  7. BERACHIN [Concomitant]
     Dosage: FREQUENCY REPORTED AS X 3. FORM REPORTED AS DRY SYRUP.
     Route: 048
     Dates: start: 20040113, end: 20040117
  8. MUCODYNE [Concomitant]
     Dosage: FREQUENCY REPORTED AS X 3.
     Route: 048
     Dates: start: 20040113, end: 20040117

REACTIONS (3)
  - GASTROINTESTINAL HAEMORRHAGE [None]
  - UPPER GASTROINTESTINAL HAEMORRHAGE [None]
  - VOMITING [None]
